FAERS Safety Report 5796991-7 (Version None)
Quarter: 2008Q2

REPORT INFORMATION
  Report Type: 
  Country: None (occurrence: None)
  Receive Date: 20080618
  Receipt Date: 20070718
  Transmission Date: 20081010
  Serious: Yes (Other)
  Sender: FDA-Public Use
  Company Number: 200711429US

PATIENT
  Age: 52 Year
  Sex: Female
  Weight: 99.99 kg

DRUGS (10)
  1. LANTUS [Suspect]
     Indication: TYPE 2 DIABETES MELLITUS
  2. LANTUS [Suspect]
     Indication: TYPE 2 DIABETES MELLITUS
     Dosage: 30 U
     Dates: start: 20070313
  3. OPTICLIK GREY [Suspect]
     Indication: TYPE 2 DIABETES MELLITUS
  4. INSULIN LISPRO (HUMALOG /01293501/) [Concomitant]
  5. PIOGLITAZONE [Concomitant]
  6. ROSUVASTATIN (CRESTOR /01588601/) [Concomitant]
  7. LEVOTHYROXINE SODIUM (THYROXINE) [Concomitant]
  8. VITAMINS NOS, MINERALS NOS (CENTUM /00554501/) [Concomitant]
  9. FISH OIL [Concomitant]
  10. VITAMINS NOS (VITAMINS NOS) [Concomitant]

REACTIONS (4)
  - BLOOD GLUCOSE DECREASED [None]
  - BLOOD GLUCOSE INCREASED [None]
  - GLYCOSYLATED HAEMOGLOBIN INCREASED [None]
  - HYPERGLYCAEMIA [None]
